FAERS Safety Report 19013263 (Version 1)
Quarter: 2021Q1

REPORT INFORMATION
  Report Type: Spontaneous
  Country: JP (occurrence: JP)
  Receive Date: 20210315
  Receipt Date: 20210315
  Transmission Date: 20210420
  Serious: Yes (Other)
  Sender: FDA-Public Use
  Company Number: JP-PFIZER INC-2021253464

PATIENT
  Age: 50 Year
  Sex: Female

DRUGS (4)
  1. PREGABALIN OD 25MG PFIZER [Suspect]
     Active Substance: PREGABALIN
     Indication: NEURALGIA
     Dosage: 50 MG
     Route: 048
     Dates: start: 20201218, end: 20210304
  2. TOARASET [Suspect]
     Active Substance: ACETAMINOPHEN\TRAMADOL HYDROCHLORIDE
     Indication: HEADACHE
     Dosage: 2 DF
     Route: 048
     Dates: start: 20210218, end: 20210304
  3. DOMPERIDONE [Suspect]
     Active Substance: DOMPERIDONE
     Indication: NAUSEA
     Dosage: 20 MG
     Route: 048
     Dates: start: 20210218, end: 20210304
  4. LEXOTAN [Concomitant]
     Active Substance: BROMAZEPAM
     Indication: PRURITUS
     Dosage: 6 MG
     Route: 048
     Dates: start: 2010, end: 20210304

REACTIONS (1)
  - Hyperprolactinaemia [Unknown]

NARRATIVE: CASE EVENT DATE: 20210222
